FAERS Safety Report 6856208-9 (Version None)
Quarter: 2010Q3

REPORT INFORMATION
  Report Type: 
  Country: None (occurrence: None)
  Receive Date: 20100719
  Receipt Date: 20100712
  Transmission Date: 20110219
  Serious: Yes (Hospitalization)
  Sender: FDA-Public Use
  Company Number: NL-TEVA-241263ISR

PATIENT
  Age: 42 Year
  Sex: Female

DRUGS (2)
  1. PREDNISOLONE [Suspect]
     Indication: ANAEMIA HAEMOLYTIC AUTOIMMUNE
     Route: 048
  2. PREDNISOLONE [Suspect]
     Route: 048

REACTIONS (3)
  - CSF PRESSURE INCREASED [None]
  - HEADACHE [None]
  - MENINGITIS CRYPTOCOCCAL [None]
